FAERS Safety Report 23326925 (Version 1)
Quarter: 2023Q4

REPORT INFORMATION
  Report Type: Spontaneous
  Country: US (occurrence: None)
  Receive Date: 20231220
  Receipt Date: 20231220
  Transmission Date: 20240110
  Serious: Yes (Hospitalization)
  Sender: FDA-Public Use
  Company Number: None

PATIENT
  Age: 4 Year
  Sex: Female
  Weight: 24.3 kg

DRUGS (2)
  1. TAMIFLU [Suspect]
     Active Substance: OSELTAMIVIR PHOSPHATE
     Indication: Influenza
     Dosage: FREQUENCY : TWICE A DAY;?
     Route: 048
     Dates: start: 20231216, end: 20231216
  2. Nature Made Multivitamin [Concomitant]

REACTIONS (16)
  - Asthenia [None]
  - Malaise [None]
  - Hypophagia [None]
  - Tremor [None]
  - Tremor [None]
  - Feeling cold [None]
  - Nightmare [None]
  - Unresponsive to stimuli [None]
  - Musculoskeletal stiffness [None]
  - Breath sounds abnormal [None]
  - Gait disturbance [None]
  - Skin discolouration [None]
  - Oxygen saturation decreased [None]
  - Pyrexia [None]
  - Seizure [None]
  - Therapy cessation [None]

NARRATIVE: CASE EVENT DATE: 20231216
